FAERS Safety Report 8396324-6 (Version None)
Quarter: 2012Q2

REPORT INFORMATION
  Report Type: 
  Country: None (occurrence: None)
  Receive Date: 20120530
  Receipt Date: 20120518
  Transmission Date: 20120825
  Serious: Yes (Hospitalization, Other)
  Sender: FDA-Public Use
  Company Number: US-ELI_LILLY_AND_COMPANY-US201006006414

PATIENT
  Sex: Female

DRUGS (5)
  1. FORTEO [Suspect]
     Dosage: 20 UG, QD
     Dates: start: 20100613
  2. RAMIPRIL [Concomitant]
     Dosage: UNK
  3. FORTEO [Suspect]
     Dosage: 20 UG, QD
     Dates: start: 20100613
  4. FORTEO [Suspect]
     Indication: OSTEOPOROSIS
     Dosage: 20 UG, DAILY (1/D)
     Route: 065
     Dates: start: 20100613
  5. FORTEO [Suspect]
     Dosage: 20 UG, QD
     Dates: start: 20100613

REACTIONS (17)
  - TOOTH ABSCESS [None]
  - HAEMORRHAGE INTRACRANIAL [None]
  - PAIN IN EXTREMITY [None]
  - WOUND HAEMORRHAGE [None]
  - SKELETAL INJURY [None]
  - ABSCESS ORAL [None]
  - DISCOMFORT [None]
  - DRUG DOSE OMISSION [None]
  - RASH [None]
  - CONCUSSION [None]
  - FALL [None]
  - TOOTH DISORDER [None]
  - WRIST FRACTURE [None]
  - CONTUSION [None]
  - GINGIVAL INFECTION [None]
  - HEAD INJURY [None]
  - JOINT INJURY [None]
